FAERS Safety Report 6169770-9 (Version None)
Quarter: 2009Q2

REPORT INFORMATION
  Report Type: 
  Country: None (occurrence: None)
  Receive Date: 20090428
  Receipt Date: 20090415
  Transmission Date: 20091009
  Serious: Yes (Death, Other)
  Sender: FDA-Public Use
  Company Number: DE-AMGEN-UK340603

PATIENT
  Sex: Male
  Weight: 83 kg

DRUGS (4)
  1. ARANESP [Suspect]
     Indication: ANAEMIA
     Route: 058
     Dates: start: 20081208, end: 20090223
  2. CIPROFLOXACIN [Concomitant]
     Route: 048
     Dates: start: 20090302
  3. DOCETAXEL [Concomitant]
     Route: 042
     Dates: start: 20071212, end: 20090223
  4. RADIATION THERAPY [Concomitant]
     Route: 065
     Dates: start: 20090326, end: 20090326

REACTIONS (4)
  - DEATH [None]
  - DYSPHAGIA [None]
  - MALAISE [None]
  - METASTASES TO CENTRAL NERVOUS SYSTEM [None]
